FAERS Safety Report 22385411 (Version 2)
Quarter: 2023Q2

REPORT INFORMATION
  Report Type: Spontaneous
  Country: US (occurrence: None)
  Receive Date: 20230530
  Receipt Date: 20230621
  Transmission Date: 20230722
  Serious: Yes (Hospitalization, Other)
  Sender: FDA-Public Use
  Company Number: 2023A123320

PATIENT
  Age: 41 Year
  Sex: Female
  Weight: 109 kg

DRUGS (67)
  1. BREZTRI [Suspect]
     Active Substance: BUDESONIDE\FORMOTEROL\GLYCOPYRROLATE
     Indication: Asthma
     Route: 055
  2. BREZTRI [Suspect]
     Active Substance: BUDESONIDE\FORMOTEROL\GLYCOPYRROLATE
     Indication: Chronic obstructive pulmonary disease
     Route: 055
  3. HUMAN IMMUNOGLOBULIN G [Suspect]
     Active Substance: HUMAN IMMUNOGLOBULIN G
     Indication: Hereditary disorder
     Dosage: Q2WEEKS
     Dates: start: 20191106
  4. HUMAN IMMUNOGLOBULIN G [Suspect]
     Active Substance: HUMAN IMMUNOGLOBULIN G
     Indication: Hereditary disorder
     Dosage: Q2WEEKS
  5. HUMAN IMMUNOGLOBULIN G [Suspect]
     Active Substance: HUMAN IMMUNOGLOBULIN G
     Indication: Hereditary disorder
     Dosage: Q2WEEKS
     Dates: start: 20191107
  6. HUMAN IMMUNOGLOBULIN G [Suspect]
     Active Substance: HUMAN IMMUNOGLOBULIN G
     Indication: Hereditary disorder
     Dosage: Q2WEEKS
     Dates: start: 20200412
  7. HUMAN IMMUNOGLOBULIN G [Suspect]
     Active Substance: HUMAN IMMUNOGLOBULIN G
     Indication: Hereditary disorder
     Dosage: Q2WEEKS
     Dates: start: 20191117
  8. GAMMAGARD LIQUID [Suspect]
     Active Substance: HUMAN IMMUNOGLOBULIN G
     Indication: Hereditary disorder
     Route: 042
     Dates: start: 20181015
  9. GAMMAGARD LIQUID [Suspect]
     Active Substance: HUMAN IMMUNOGLOBULIN G
     Indication: Hereditary disorder
     Dates: start: 20230326
  10. GAMMAGARD LIQUID [Suspect]
     Active Substance: HUMAN IMMUNOGLOBULIN G
     Indication: Hereditary disorder
     Route: 042
     Dates: start: 20211117
  11. DUPIXENT [Suspect]
     Active Substance: DUPILUMAB
     Indication: Vomiting
     Dosage: 300MG
     Route: 058
     Dates: start: 20190315
  12. CUVITRU [Suspect]
     Active Substance: HUMAN IMMUNOGLOBULIN G
     Indication: Congenital hypogammaglobulinaemia
     Route: 058
     Dates: start: 20191106
  13. CUVITRU [Suspect]
     Active Substance: HUMAN IMMUNOGLOBULIN G
     Indication: Congenital hypogammaglobulinaemia
     Route: 058
     Dates: start: 20191107
  14. CUVITRU [Suspect]
     Active Substance: HUMAN IMMUNOGLOBULIN G
     Indication: Congenital hypogammaglobulinaemia
     Route: 058
     Dates: start: 20191106
  15. CUVITRU [Suspect]
     Active Substance: HUMAN IMMUNOGLOBULIN G
     Indication: Congenital hypogammaglobulinaemia
     Route: 058
     Dates: start: 20191107
  16. HEPARIN [Concomitant]
     Active Substance: HEPARIN SODIUM
  17. DIPHENHYDRAMINE [Concomitant]
     Active Substance: DIPHENHYDRAMINE
  18. OXYCODONE HYDROCHLORIDE [Concomitant]
     Active Substance: OXYCODONE HYDROCHLORIDE
  19. LAMOTRIGINE [Concomitant]
     Active Substance: LAMOTRIGINE
  20. CYANOCOBALAMIN [Concomitant]
     Active Substance: CYANOCOBALAMIN
  21. SYMBICORT [Concomitant]
     Active Substance: BUDESONIDE\FORMOTEROL FUMARATE DIHYDRATE
  22. CLOPIDOGREL KIT [Concomitant]
  23. HYDROXYZINE [Concomitant]
     Active Substance: HYDROXYZINE HYDROCHLORIDE
  24. SODIUM CHLORIDE [Concomitant]
     Active Substance: SODIUM CHLORIDE
  25. EPINEPHRINE [Concomitant]
     Active Substance: EPINEPHRINE
  26. BUSPIRONE [Concomitant]
     Active Substance: BUSPIRONE HYDROCHLORIDE
  27. FUROSEMIDE [Concomitant]
     Active Substance: FUROSEMIDE
  28. PREDNISONE [Concomitant]
     Active Substance: PREDNISONE
  29. GABAPENTIN [Concomitant]
     Active Substance: GABAPENTIN
  30. LUMIGAN [Concomitant]
     Active Substance: BIMATOPROST
  31. ACETAMINOPHEN [Concomitant]
     Active Substance: ACETAMINOPHEN
  32. AIMOVIG [Concomitant]
     Active Substance: ERENUMAB-AOOE
  33. OXYGEN [Concomitant]
     Active Substance: OXYGEN
  34. TUDORZA PRESSAIR [Concomitant]
     Active Substance: ACLIDINIUM BROMIDE
  35. SINGULAIR [Concomitant]
     Active Substance: MONTELUKAST SODIUM
  36. MIDODRINE HYDROCHLORIDE [Concomitant]
     Active Substance: MIDODRINE HYDROCHLORIDE
  37. ROSUVASTATTN CALCIUM [Concomitant]
  38. IPRATROPIUM [Concomitant]
     Active Substance: IPRATROPIUM
  39. LMX [Concomitant]
  40. METHOTREXATE [Concomitant]
     Active Substance: METHOTREXATE
  41. VITAMIN D [Concomitant]
     Active Substance: VITAMIN D NOS
  42. RAMIPRIL [Concomitant]
     Active Substance: RAMIPRIL
  43. DOXYCYCLINE HYCLATE [Concomitant]
     Active Substance: DOXYCYCLINE HYCLATE
  44. MONTELUKAST SODIUM [Concomitant]
     Active Substance: MONTELUKAST SODIUM
  45. FOLIC ACID [Concomitant]
     Active Substance: FOLIC ACID
  46. TIZANIDINE HYDROCHLORIDE [Concomitant]
     Active Substance: TIZANIDINE HYDROCHLORIDE
  47. MAGNESSIUM [Concomitant]
  48. VITAMIN B12 [Concomitant]
     Active Substance: CYANOCOBALAMIN
  49. VITAMINS [Concomitant]
     Active Substance: VITAMINS
  50. PROAIR HFA [Concomitant]
     Active Substance: ALBUTEROL SULFATE
  51. MECLIZINE HYDROCHLORIDE [Concomitant]
     Active Substance: MECLIZINE HYDROCHLORIDE
  52. MTDODRTNE [Concomitant]
  53. BUSPIRONE [Concomitant]
     Active Substance: BUSPIRONE HYDROCHLORIDE
  54. VITAMIN B2 [Concomitant]
     Active Substance: RIBOFLAVIN
  55. TIZANIDINE [Concomitant]
     Active Substance: TIZANIDINE
  56. ALBUTEROL [Concomitant]
     Active Substance: ALBUTEROL
  57. BUDESONIDE [Concomitant]
     Active Substance: BUDESONIDE
  58. HUMIRA [Concomitant]
     Active Substance: ADALIMUMAB
  59. FLOVENT [Concomitant]
     Active Substance: FLUTICASONE PROPIONATE
  60. NORVASC [Concomitant]
     Active Substance: AMLODIPINE BESYLATE
  61. SODIUM CHLORIDE [Concomitant]
     Active Substance: SODIUM CHLORIDE
  62. PROMETHAZINE [Concomitant]
     Active Substance: PROMETHAZINE HYDROCHLORIDE
  63. PLAVIX [Concomitant]
     Active Substance: CLOPIDOGREL BISULFATE
  64. VITAMIN D3 [Concomitant]
     Active Substance: CHOLECALCIFEROL
  65. TOPIRAMATE [Concomitant]
     Active Substance: TOPIRAMATE
  66. ATORVASTATIN CALCIUM [Concomitant]
     Active Substance: ATORVASTATIN CALCIUM
  67. FLONASE [Concomitant]
     Active Substance: FLUTICASONE PROPIONATE

REACTIONS (58)
  - Transient ischaemic attack [Unknown]
  - Pulmonary hypertension [Unknown]
  - Cardiac disorder [Unknown]
  - Seizure [Unknown]
  - Anaphylactic reaction [Unknown]
  - Pneumonia [Unknown]
  - Blood pressure increased [Unknown]
  - Decreased immune responsiveness [Unknown]
  - Asthma [Unknown]
  - Chest pain [Recovered/Resolved]
  - Dyspnoea [Unknown]
  - Oxygen saturation decreased [Unknown]
  - Rheumatoid arthritis [Unknown]
  - Sinusitis bacterial [Unknown]
  - Atypical pneumonia [Unknown]
  - Pleurisy [Unknown]
  - Bronchitis [Unknown]
  - Chills [Recovered/Resolved]
  - Fatigue [Not Recovered/Not Resolved]
  - Upper respiratory tract infection [Unknown]
  - Infection [Unknown]
  - Nasopharyngitis [Unknown]
  - Sinus congestion [Unknown]
  - Increased upper airway secretion [Unknown]
  - Nasal polyps [Unknown]
  - Illness [Unknown]
  - Multiple allergies [Unknown]
  - Respiratory tract congestion [Unknown]
  - Ear infection [Recovered/Resolved]
  - Infusion related reaction [Unknown]
  - Viral infection [Unknown]
  - Sinusitis [Unknown]
  - Obstruction [Unknown]
  - Laryngitis [Not Recovered/Not Resolved]
  - Musculoskeletal stiffness [Unknown]
  - Gastroenteritis viral [Unknown]
  - Nasal congestion [Not Recovered/Not Resolved]
  - Groin pain [Not Recovered/Not Resolved]
  - Influenza like illness [Unknown]
  - Chest discomfort [Recovered/Resolved]
  - Bronchospasm [Unknown]
  - Influenza [Unknown]
  - Lymphadenopathy [Unknown]
  - Asthenia [Unknown]
  - Pyrexia [Unknown]
  - Headache [Unknown]
  - Decreased appetite [Unknown]
  - Pain [Unknown]
  - Nausea [Unknown]
  - Migraine [Unknown]
  - Rash papular [Unknown]
  - Dermatitis [Unknown]
  - Pain in extremity [Unknown]
  - Drug delivery system issue [Unknown]
  - Cardiomegaly [Unknown]
  - Incorrect dose administered [Unknown]
  - Inappropriate schedule of product administration [Unknown]
  - Off label use [Unknown]
